FAERS Safety Report 17100162 (Version 1)
Quarter: 2019Q4

REPORT INFORMATION
  Report Type: Spontaneous
  Country: BR (occurrence: BR)
  Receive Date: 20191202
  Receipt Date: 20191202
  Transmission Date: 20200122
  Serious: No
  Sender: FDA-Public Use
  Company Number: BR-UPSHER-SMITH LABORATORIES, LLC-2019USL00866

PATIENT
  Age: 6 Year
  Sex: Male

DRUGS (1)
  1. TESTOSTERONE. [Suspect]
     Active Substance: TESTOSTERONE
     Route: 061

REACTIONS (2)
  - Precocious puberty [Recovered/Resolved]
  - Accidental exposure to product by child [Recovered/Resolved]
